FAERS Safety Report 12285741 (Version 3)
Quarter: 2016Q2

REPORT INFORMATION
  Report Type: Report from Study
  Country: US (occurrence: US)
  Receive Date: 20160420
  Receipt Date: 20160510
  Transmission Date: 20160815
  Serious: Yes (Hospitalization)
  Sender: FDA-Public Use
  Company Number: US-GILEAD-2016-0209175

PATIENT
  Age: 77 Year
  Sex: Female
  Weight: 81.63 kg

DRUGS (6)
  1. VITAMIN D3 [Concomitant]
     Active Substance: CHOLECALCIFEROL
  2. AMBRISENTAN [Suspect]
     Active Substance: AMBRISENTAN
     Indication: PRODUCT USED FOR UNKNOWN INDICATION
     Dosage: 5 MG, QD
     Route: 048
     Dates: start: 20160322
  3. ATORVASTATIN [Concomitant]
     Active Substance: ATORVASTATIN
  4. ADEMPAS [Suspect]
     Active Substance: RIOCIGUAT
     Indication: PRODUCT USED FOR UNKNOWN INDICATION
     Dosage: 2 MG, UNK
     Route: 048
  5. OXYBUTYNIN [Concomitant]
     Active Substance: OXYBUTYNIN
  6. ASPIRIN                            /00002701/ [Concomitant]
     Active Substance: ASPIRIN

REACTIONS (4)
  - Abasia [Recovered/Resolved]
  - Ischaemia [Recovered/Resolved]
  - Peripheral swelling [Recovered/Resolved]
  - Weight increased [Unknown]
